FAERS Safety Report 9781145 (Version 2)
Quarter: 2014Q1

REPORT INFORMATION
  Report Type: Report from Study
  Country: NL (occurrence: NL)
  Receive Date: 20131224
  Receipt Date: 20140106
  Transmission Date: 20141002
  Serious: Yes (Death)
  Sender: FDA-Public Use
  Company Number: NL-CELGENEUS-114-21880-13122255

PATIENT
  Age: 77 Year
  Sex: Female

DRUGS (2)
  1. REVLIMID [Suspect]
     Indication: ACUTE MYELOID LEUKAEMIA
     Route: 048
     Dates: start: 20130827
  2. REVLIMID [Suspect]
     Indication: OFF LABEL USE
     Route: 048
     Dates: start: 20131028, end: 20131111

REACTIONS (1)
  - Acute myeloid leukaemia [Fatal]
